FAERS Safety Report 22012950 (Version 1)
Quarter: 2023Q1

REPORT INFORMATION
  Report Type: Spontaneous
  Country: GR (occurrence: GR)
  Receive Date: 20230220
  Receipt Date: 20230220
  Transmission Date: 20230418
  Serious: Yes (Disabling, Other)
  Sender: FDA-Public Use
  Company Number: None

PATIENT
  Age: 56 Year
  Sex: Male
  Weight: 91 kg

DRUGS (9)
  1. ROSUVASTATIN [Suspect]
     Active Substance: ROSUVASTATIN
     Indication: Product used for unknown indication
     Dosage: 40 MILLIGRAM
     Route: 065
  2. EZETIMIBE [Suspect]
     Active Substance: EZETIMIBE
     Indication: Product used for unknown indication
     Dosage: 10 MILLIGRAM
     Route: 065
  3. ATORVASTATIN [Suspect]
     Active Substance: ATORVASTATIN
     Indication: Product used for unknown indication
     Dosage: 40 MILLIGRAM
     Route: 065
  4. PITAVASTATIN [Suspect]
     Active Substance: PITAVASTATIN
     Indication: Product used for unknown indication
     Dosage: 2 MILLIGRAM
     Route: 065
  5. CLOPIDOGREL [Concomitant]
     Active Substance: CLOPIDOGREL BISULFATE
     Dosage: UNK
     Route: 065
  6. BISOPROLOL [Concomitant]
     Active Substance: BISOPROLOL
     Dosage: UNK
     Route: 065
  7. ACENOCOUMAROL [Concomitant]
     Active Substance: ACENOCOUMAROL
     Dosage: UNK
     Route: 065
  8. PANTOPRAZOLE [Concomitant]
     Active Substance: PANTOPRAZOLE
     Dosage: UNK
     Route: 065
  9. PERINDOPRIL [Concomitant]
     Active Substance: PERINDOPRIL
     Dosage: UNK
     Route: 065

REACTIONS (3)
  - Neutropenia [Recovering/Resolving]
  - Arthralgia [Recovering/Resolving]
  - Myalgia [Recovering/Resolving]

NARRATIVE: CASE EVENT DATE: 20220701
